FAERS Safety Report 12931580 (Version 1)
Quarter: 2016Q4

REPORT INFORMATION
  Report Type: Spontaneous
  Country: RU (occurrence: RU)
  Receive Date: 20161110
  Receipt Date: 20161110
  Transmission Date: 20170207
  Serious: Yes (Other)
  Sender: FDA-Public Use
  Company Number: RU-BAXTER-2016BAX056378

PATIENT
  Age: 60 Year
  Sex: Male

DRUGS (12)
  1. PREDNISOLONE. [Suspect]
     Active Substance: PREDNISOLONE
     Indication: MANTLE CELL LYMPHOMA
     Dosage: SINGLE DOSE 20 MG/TOTAL DAILY DOSE 200MG, TWO COURSES
     Route: 065
     Dates: start: 20160329, end: 20160501
  2. TORISEL [Concomitant]
     Active Substance: TEMSIROLIMUS
     Indication: METASTASES TO BONE MARROW
     Dosage: SWITCHED AGAIN
     Route: 065
     Dates: start: 20160510
  3. ENDOKSAN TABLETKI POKRYTYE SAHARNOJ OBOLOCHKOJ [Suspect]
     Active Substance: CYCLOPHOSPHAMIDE
     Indication: METASTASES TO BONE MARROW
  4. ETOPOSIDE. [Suspect]
     Active Substance: ETOPOSIDE
     Indication: MANTLE CELL LYMPHOMA
     Dosage: SINGLE DOSE 50 MG, TOTAL DAILY DOSE 500MG, TWO COURSES
     Route: 048
     Dates: start: 20160329, end: 20160501
  5. NATULAN [Suspect]
     Active Substance: PROCARBAZINE HYDROCHLORIDE
     Indication: MANTLE CELL LYMPHOMA
     Dosage: SINGLE DOSE 50 MG/TOTAL DAILY DOSE 500 MG, TWO COURSES
     Route: 048
     Dates: start: 20160329, end: 20160501
  6. ETOPOSIDE. [Suspect]
     Active Substance: ETOPOSIDE
     Indication: METASTASES TO BONE MARROW
  7. NATULAN [Suspect]
     Active Substance: PROCARBAZINE HYDROCHLORIDE
     Indication: METASTASES TO BONE MARROW
  8. RITUXIMAB [Suspect]
     Active Substance: RITUXIMAB
     Indication: METASTASES TO BONE MARROW
  9. RITUXIMAB [Suspect]
     Active Substance: RITUXIMAB
     Indication: MANTLE CELL LYMPHOMA
     Route: 065
     Dates: start: 20160329, end: 20160501
  10. ENDOKSAN TABLETKI POKRYTYE SAHARNOJ OBOLOCHKOJ [Suspect]
     Active Substance: CYCLOPHOSPHAMIDE
     Indication: MANTLE CELL LYMPHOMA
     Dosage: SINGLE DOSE 50 MG/TOTAL DAILY DOSE 500 MG, TWO COURSES
     Route: 048
     Dates: start: 20160329, end: 20160501
  11. PREDNISOLONE. [Suspect]
     Active Substance: PREDNISOLONE
     Indication: METASTASES TO BONE MARROW
  12. TORISEL [Concomitant]
     Active Substance: TEMSIROLIMUS
     Indication: MANTLE CELL LYMPHOMA
     Dosage: REGRESSION OF LYMPHOMA WAS ACHIEVED MORE THAN 80%
     Route: 065

REACTIONS (1)
  - Malignant neoplasm progression [Unknown]

NARRATIVE: CASE EVENT DATE: 2016
